FAERS Safety Report 24369919 (Version 1)
Quarter: 2024Q3

REPORT INFORMATION
  Report Type: Spontaneous
  Country: AU (occurrence: AU)
  Receive Date: 20240927
  Receipt Date: 20240927
  Transmission Date: 20241017
  Serious: Yes (Hospitalization)
  Sender: BOEHRINGER INGELHEIM
  Company Number: AU-BoehringerIngelheim-2024-BI-053532

PATIENT
  Age: 75 Year
  Sex: Female

DRUGS (2)
  1. EMPAGLIFLOZIN\METFORMIN HYDROCHLORIDE [Suspect]
     Active Substance: EMPAGLIFLOZIN\METFORMIN HYDROCHLORIDE
     Indication: Type 2 diabetes mellitus
     Dates: start: 2014
  2. METHOTREXATE [Concomitant]
     Active Substance: METHOTREXATE
     Indication: Psoriasis

REACTIONS (2)
  - Necrotising fasciitis [Recovered/Resolved]
  - Glycosylated haemoglobin increased [Unknown]
